FAERS Safety Report 9303244 (Version 1)
Quarter: 2013Q2

REPORT INFORMATION
  Report Type: Spontaneous
  Country: US (occurrence: None)
  Receive Date: 20130521
  Receipt Date: 20130521
  Transmission Date: 20140414
  Serious: Yes (Other)
  Sender: FDA-Public Use
  Company Number: None

PATIENT
  Age: 65 Year
  Sex: Female
  Weight: 61.24 kg

DRUGS (1)
  1. EPITOL [Suspect]
     Indication: TRIGEMINAL NEURALGIA
     Dates: start: 20130425, end: 20130504

REACTIONS (2)
  - Rash generalised [None]
  - Swelling face [None]
